FAERS Safety Report 21773574 (Version 3)
Quarter: 2023Q1

REPORT INFORMATION
  Report Type: Spontaneous
  Country: CH (occurrence: CH)
  Receive Date: 20221223
  Receipt Date: 20230118
  Transmission Date: 20230418
  Serious: Yes (Death, Other)
  Sender: FDA-Public Use
  Company Number: CH-INCYTE CORPORATION-2022IN012344

PATIENT

DRUGS (2)
  1. TAFASITAMAB [Suspect]
     Active Substance: TAFASITAMAB
     Indication: Diffuse large B-cell lymphoma
     Dosage: 800 MILLIGRAM (ONE DOSE)
     Route: 042
     Dates: start: 20221102
  2. LENALIDOMIDE [Concomitant]
     Active Substance: LENALIDOMIDE
     Indication: Diffuse large B-cell lymphoma
     Dosage: UNK
     Route: 065
     Dates: start: 20221105, end: 20221105

REACTIONS (8)
  - Diffuse large B-cell lymphoma [Fatal]
  - Disease progression [Fatal]
  - Ascites [Unknown]
  - Pain [Unknown]
  - Pleural effusion [Unknown]
  - Dyspnoea [Unknown]
  - Asthenia [Unknown]
  - Vomiting [Unknown]
